FAERS Safety Report 14141938 (Version 5)
Quarter: 2018Q1

REPORT INFORMATION
  Report Type: Report from Study
  Country: DZ (occurrence: DZ)
  Receive Date: 20171030
  Receipt Date: 20180322
  Transmission Date: 20180508
  Serious: Yes (Hospitalization)
  Sender: FDA-Public Use
  Company Number: DZ-JNJFOC-20171029394

PATIENT
  Age: 33 Year
  Sex: Female

DRUGS (2)
  1. REMICADE [Suspect]
     Active Substance: INFLIXIMAB
     Indication: PRODUCT USED FOR UNKNOWN INDICATION
     Route: 042
     Dates: start: 20171023
  2. REMICADE [Suspect]
     Active Substance: INFLIXIMAB
     Indication: PRODUCT USED FOR UNKNOWN INDICATION
     Route: 042
     Dates: start: 20170822

REACTIONS (2)
  - Fistula discharge [Recovered/Resolved]
  - Fistula [Recovered/Resolved]

NARRATIVE: CASE EVENT DATE: 20171023
